FAERS Safety Report 6278318-X (Version None)
Quarter: 2009Q3

REPORT INFORMATION
  Report Type: 
  Country: None (occurrence: None)
  Receive Date: 20090722
  Receipt Date: 20090716
  Transmission Date: 20100115
  Serious: Yes (Hospitalization)
  Sender: FDA-Public Use
  Company Number: FR-AVENTIS-200910891FR

PATIENT
  Age: 79 Year
  Sex: Female

DRUGS (12)
  1. TORENTAL [Suspect]
     Indication: DRUG USE FOR UNKNOWN INDICATION
     Dosage: DOSE QUANTITY: 20; DOSE UNIT: MILLIGRAM PER MILLILITRE
     Route: 042
     Dates: start: 20081231, end: 20081231
  2. CONTRAST MEDIA [Suspect]
     Route: 042
     Dates: start: 20081231, end: 20081231
  3. BROMAZEPAM [Concomitant]
     Indication: DRUG USE FOR UNKNOWN INDICATION
     Route: 048
     Dates: start: 20081230
  4. ACTIVASE [Concomitant]
     Indication: DRUG USE FOR UNKNOWN INDICATION
     Route: 042
     Dates: start: 20081231, end: 20081231
  5. XYLOCAINE [Concomitant]
     Indication: DRUG USE FOR UNKNOWN INDICATION
     Dates: start: 20081231, end: 20081231
  6. LASILIX                            /00032601/ [Concomitant]
     Indication: DRUG USE FOR UNKNOWN INDICATION
  7. NEXIUM [Concomitant]
     Indication: DRUG USE FOR UNKNOWN INDICATION
     Route: 048
  8. RENAGEL                            /01459902/ [Concomitant]
     Indication: DRUG USE FOR UNKNOWN INDICATION
     Route: 048
  9. CALCIDIA [Concomitant]
     Indication: DRUG USE FOR UNKNOWN INDICATION
     Route: 048
  10. KAYEXALATE [Concomitant]
     Indication: DRUG USE FOR UNKNOWN INDICATION
  11. DAFALGAN                           /00020001/ [Concomitant]
     Indication: DRUG USE FOR UNKNOWN INDICATION
  12. BICARBONATE SODIUM [Concomitant]
     Indication: DRUG USE FOR UNKNOWN INDICATION

REACTIONS (1)
  - ACUTE GENERALISED EXANTHEMATOUS PUSTULOSIS [None]
